FAERS Safety Report 8431538-8 (Version None)
Quarter: 2012Q2

REPORT INFORMATION
  Report Type: 
  Country: None (occurrence: None)
  Receive Date: 20120607
  Receipt Date: 20120607
  Transmission Date: 20120825
  Serious: Yes (Hospitalization)
  Sender: FDA-Public Use
  Company Number: None

PATIENT
  Sex: Female
  Weight: 85.7298 kg

DRUGS (1)
  1. XARELTO [Suspect]
     Indication: ARTHROPATHY
     Dosage: 10 MG DAILY PO 2 DOSES @ HOSP  2 DOSES @ HOME  1 DOSE @ HOSP  WHEN READMITTED
     Route: 048
     Dates: start: 20120114, end: 20120118

REACTIONS (4)
  - DIZZINESS [None]
  - ASTHENIA [None]
  - APHAGIA [None]
  - DYSPNOEA [None]
